FAERS Safety Report 20204243 (Version 1)
Quarter: 2021Q4

REPORT INFORMATION
  Report Type: Spontaneous
  Country: US (occurrence: US)
  Receive Date: 20211220
  Receipt Date: 20211220
  Transmission Date: 20220304
  Serious: No
  Sender: FDA-Public Use
  Company Number: US-AUROBINDO-AUR-APL-2021-035643

PATIENT
  Age: 29 Year
  Sex: Male
  Weight: 62.585 kg

DRUGS (4)
  1. LAMOTRIGINE [Suspect]
     Active Substance: LAMOTRIGINE
     Indication: Chest pain
     Dosage: 4.5 DOSAGE FORM, ONCE A DAY
     Route: 065
  2. LAMOTRIGINE [Suspect]
     Active Substance: LAMOTRIGINE
     Indication: Bipolar disorder
     Dosage: 3 DOSAGE FORM, ONCE A DAY
     Route: 048
  3. LAMOTRIGINE [Suspect]
     Active Substance: LAMOTRIGINE
     Indication: Autism spectrum disorder
  4. CANNABIS SATIVA SUBSP. INDICA TOP [Concomitant]
     Active Substance: CANNABIS SATIVA SUBSP. INDICA TOP
     Indication: Psychomotor hyperactivity
     Dosage: 150 MILLIGRAM (50 MG BEFORE BED), TWO TIMES A DAY
     Route: 065

REACTIONS (5)
  - Hypersensitivity [Recovering/Resolving]
  - Anxiety [Recovering/Resolving]
  - Nervousness [Recovering/Resolving]
  - Product substitution issue [Unknown]
  - Product use in unapproved indication [Unknown]
